FAERS Safety Report 12948804 (Version 3)
Quarter: 2017Q2

REPORT INFORMATION
  Report Type: Report from Study
  Country: US (occurrence: US)
  Receive Date: 20161116
  Receipt Date: 20170619
  Transmission Date: 20170830
  Serious: Yes (Hospitalization)
  Sender: FDA-Public Use
  Company Number: US-SA-2016SA186008

PATIENT
  Age: 56 Year
  Sex: Female

DRUGS (1)
  1. LEMTRADA [Suspect]
     Active Substance: ALEMTUZUMAB
     Indication: MULTIPLE SCLEROSIS
     Route: 041
     Dates: start: 20160926, end: 20160928

REACTIONS (16)
  - Blood magnesium decreased [Recovered/Resolved]
  - Insomnia [Recovered/Resolved]
  - Feeling cold [Not Recovered/Not Resolved]
  - Blood sodium decreased [Recovered/Resolved]
  - Breath sounds abnormal [Recovered/Resolved]
  - CD4 lymphocytes abnormal [Not Recovered/Not Resolved]
  - Crepitations [Recovered/Resolved]
  - Blood potassium decreased [Recovered/Resolved]
  - Heart rate decreased [Recovered/Resolved]
  - Hyperhidrosis [Not Recovered/Not Resolved]
  - Painful respiration [Unknown]
  - Pain [Recovered/Resolved]
  - Hot flush [Not Recovered/Not Resolved]
  - Balance disorder [Not Recovered/Not Resolved]
  - Pneumonitis [Recovered/Resolved]
  - Heart rate increased [Not Recovered/Not Resolved]

NARRATIVE: CASE EVENT DATE: 201605
